FAERS Safety Report 23287599 (Version 1)
Quarter: 2023Q4

REPORT INFORMATION
  Report Type: Spontaneous
  Country: US (occurrence: None)
  Receive Date: 20231210
  Receipt Date: 20231210
  Transmission Date: 20240109
  Serious: Yes (Disabling)
  Sender: FDA-Public Use
  Company Number: None

PATIENT
  Age: 65 Year
  Sex: Female
  Weight: 112 kg

DRUGS (20)
  1. DOXYCYCLINE HYCLATE [Suspect]
     Active Substance: DOXYCYCLINE HYCLATE
     Indication: Post procedural infection
     Dosage: 28 TABLETS TWICE A DAY ORAL
     Route: 048
     Dates: start: 20231016, end: 20231019
  2. CIPROFLOXACIN [Suspect]
     Active Substance: CIPROFLOXACIN
  3. RIFAMPIN [Suspect]
     Active Substance: RIFAMPIN
  4. CEFEPIME [Suspect]
     Active Substance: CEFEPIME HYDROCHLORIDE
  5. VANCOMYCIN [Suspect]
     Active Substance: VANCOMYCIN
  6. SODIUM CHLORIDE [Concomitant]
     Active Substance: SODIUM CHLORIDE
  7. BYSTOLIC [Concomitant]
     Active Substance: NEBIVOLOL HYDROCHLORIDE
  8. ATORVASTATIN [Concomitant]
     Active Substance: ATORVASTATIN
  9. ZYRTEC [Concomitant]
     Active Substance: CETIRIZINE HYDROCHLORIDE
  10. VITAMINS [Concomitant]
     Active Substance: VITAMINS
  11. .BETA.-HYDROXYISOVALERIC ACID\ARGININE\GLUTAMINE [Concomitant]
     Active Substance: .BETA.-HYDROXYISOVALERIC ACID\ARGININE\GLUTAMINE
  12. VANCOMYCIN [Concomitant]
     Active Substance: VANCOMYCIN
  13. CEFEPIME [Concomitant]
     Active Substance: CEFEPIME HYDROCHLORIDE
  14. OXYCODONE [Concomitant]
     Active Substance: OXYCODONE
  15. ROBIN [Concomitant]
  16. SUDAPHED 12 HOUR [Concomitant]
  17. TYLENOL [Concomitant]
     Active Substance: ACETAMINOPHEN
  18. UNSPECIFIED INGREDIENT [Concomitant]
     Active Substance: UNSPECIFIED INGREDIENT
  19. LANSPRANAZOLE [Concomitant]
  20. PEPCID [Concomitant]
     Active Substance: FAMOTIDINE

REACTIONS (13)
  - Urticaria [None]
  - Pruritus [None]
  - Scab [None]
  - Blister [None]
  - Procedural pain [None]
  - Skin discolouration [None]
  - Stevens-Johnson syndrome [None]
  - Diarrhoea [None]
  - Skin lesion [None]
  - Dry eye [None]
  - Klebsiella infection [None]
  - Therapy cessation [None]
  - Inappropriate antidiuretic hormone secretion [None]

NARRATIVE: CASE EVENT DATE: 20231016
